FAERS Safety Report 8669399 (Version 2)
Quarter: 2012Q4

REPORT INFORMATION
  Report Type: 
  Country: CA (occurrence: CA)
  Receive Date: 20120717
  Receipt Date: 20120912
  Transmission Date: 20130627
  Serious: Yes (Other)
  Sender: FDA-Public Use
  Company Number: PHHY2012CA007474

PATIENT
  Sex: Male

DRUGS (3)
  1. SANDOSTATIN [Suspect]
     Indication: NEUROENDOCRINE TUMOUR
     Dosage: 50 ug, UNK
     Route: 058
     Dates: start: 20120119
  2. SANDOSTATIN LAR [Suspect]
     Indication: NEUROENDOCRINE TUMOUR
     Dosage: 30 mg, QMO
     Route: 030
     Dates: start: 20120126
  3. SANDOSTATIN LAR [Suspect]
     Dosage: 30 mg, every 4 weeks

REACTIONS (3)
  - Hepatic cancer [Unknown]
  - Second primary malignancy [Unknown]
  - Injection site pain [Unknown]
